FAERS Safety Report 20146004 (Version 1)
Quarter: 2021Q4

REPORT INFORMATION
  Report Type: Report from Study
  Country: US (occurrence: US)
  Receive Date: 20211203
  Receipt Date: 20211203
  Transmission Date: 20220303
  Serious: Yes (Hospitalization, Other)
  Sender: FDA-Public Use
  Company Number: US-UCBSA-2021055986

PATIENT
  Age: 62 Year
  Sex: Female

DRUGS (8)
  1. LACOSAMIDE [Suspect]
     Active Substance: LACOSAMIDE
     Indication: Seizure
     Dosage: 100 MILLIGRAM, 2X/DAY (BID)
  2. LEVETIRACETAM [Suspect]
     Active Substance: LEVETIRACETAM
     Dosage: 1500 MILLIGRAM, 2X/DAY (BID)
  3. ALPRAZOLAM [Concomitant]
     Active Substance: ALPRAZOLAM
     Indication: Anxiety disorder
  4. AMITRIPTYLINE [Concomitant]
     Active Substance: AMITRIPTYLINE
     Indication: Anxiety disorder
  5. DULOXETINE [Concomitant]
     Active Substance: DULOXETINE
     Indication: Major depression
  6. MELATONIN [Concomitant]
     Active Substance: MELATONIN
     Indication: Insomnia
  7. NAPROXEN [Concomitant]
     Active Substance: NAPROXEN
     Indication: Nutritional supplementation
  8. SUMATRIPTAN [Concomitant]
     Active Substance: SUMATRIPTAN
     Indication: Product used for unknown indication

REACTIONS (14)
  - Cerebrovascular accident [Unknown]
  - Suicidal ideation [Unknown]
  - Loss of personal independence in daily activities [Unknown]
  - Transient ischaemic attack [Unknown]
  - Cognitive disorder [Unknown]
  - Frustration tolerance decreased [Unknown]
  - Depression [Unknown]
  - Muscle rupture [Unknown]
  - Seizure [Unknown]
  - Apraxia [Unknown]
  - Fall [Unknown]
  - Balance disorder [Unknown]
  - Gait disturbance [Unknown]
  - Dizziness [Unknown]

NARRATIVE: CASE EVENT DATE: 20200101
